FAERS Safety Report 5128319-X (Version None)
Quarter: 2006Q4

REPORT INFORMATION
  Report Type: 
  Country: None (occurrence: None)
  Receive Date: 20061011
  Receipt Date: 20060919
  Transmission Date: 20070319
  Serious: Yes (Hospitalization, Other)
  Sender: FDA-Public Use
  Company Number: US200609006065

PATIENT
  Age: 74 Year
  Sex: Male
  Weight: 108.8 kg

DRUGS (6)
  1. HUMALOG [Suspect]
  2. HUMULIN N [Suspect]
     Dosage: SEE IMAGE
     Dates: start: 19990101, end: 20030101
  3. HUMULIN R [Suspect]
     Dosage: UNK, AS NEEDED
     Dates: start: 19990101, end: 20060101
  4. BYETTA (EXENATIDE) PEN, DISPOSABLE [Concomitant]
  5. PRANDIN ^NOVO NORDISK^ (REPAGLINIDE) [Concomitant]
  6. LANTUS [Concomitant]

REACTIONS (9)
  - FEELING ABNORMAL [None]
  - GAIT DISTURBANCE [None]
  - JOINT SWELLING [None]
  - MEMORY IMPAIRMENT [None]
  - PHARMACEUTICAL PRODUCT COMPLAINT [None]
  - RETINAL DETACHMENT [None]
  - STOMACH DISCOMFORT [None]
  - STUPOR [None]
  - THERMAL BURN [None]
